FAERS Safety Report 17423960 (Version 2)
Quarter: 2020Q2

REPORT INFORMATION
  Report Type: Not Available
  Country: US (occurrence: US)
  Receive Date: 20200217
  Receipt Date: 20200511
  Transmission Date: 20200713
  Serious: Yes (Hospitalization)
  Sender: FDA-Public Use
  Company Number: US-NEUROCRINE BIOSCIENCES INC.-2020NBI00437

PATIENT
  Age: 56 Year
  Sex: Female

DRUGS (26)
  1. RENVELA [Concomitant]
     Active Substance: SEVELAMER CARBONATE
  2. GENTAMICIN. [Concomitant]
     Active Substance: GENTAMICIN
  3. LEVEMIR [Concomitant]
     Active Substance: INSULIN DETEMIR
  4. INGREZZA [Suspect]
     Active Substance: VALBENAZINE
     Route: 048
     Dates: start: 20190827
  5. CALCITRIOL. [Concomitant]
     Active Substance: CALCITRIOL
  6. CLONIDINE. [Concomitant]
     Active Substance: CLONIDINE
  7. PRASUGREL. [Concomitant]
     Active Substance: PRASUGREL
  8. ROSUVASTATIN. [Concomitant]
     Active Substance: ROSUVASTATIN
  9. DICYCLOMINE [Concomitant]
     Active Substance: DICYCLOMINE HYDROCHLORIDE
  10. NOVOLOG [Concomitant]
     Active Substance: INSULIN ASPART
  11. CITALOPRAM [Concomitant]
     Active Substance: CITALOPRAM HYDROBROMIDE
  12. ALLOPURINOL. [Concomitant]
     Active Substance: ALLOPURINOL
  13. VENTOLIN (PROAIR) [Concomitant]
  14. INSULIN [Concomitant]
     Active Substance: INSULIN NOS
  15. LYRICA [Concomitant]
     Active Substance: PREGABALIN
  16. BACTRIM [Concomitant]
     Active Substance: SULFAMETHOXAZOLE\TRIMETHOPRIM
  17. CALCIUM [Concomitant]
     Active Substance: CALCIUM
  18. CARVEDILOL. [Concomitant]
     Active Substance: CARVEDILOL
  19. LISINOPRIL. [Concomitant]
     Active Substance: LISINOPRIL
  20. AMLODIPINE [Concomitant]
     Active Substance: AMLODIPINE BESYLATE
  21. TYLENOL [Concomitant]
     Active Substance: ACETAMINOPHEN
  22. ZOFRAN [Concomitant]
     Active Substance: ONDANSETRON HYDROCHLORIDE
  23. AMITRIPTYLINE [Concomitant]
     Active Substance: AMITRIPTYLINE
  24. INGREZZA [Suspect]
     Active Substance: VALBENAZINE
     Indication: TARDIVE DYSKINESIA
     Route: 048
     Dates: start: 20190819, end: 20190826
  25. CARBIDOPA-LEVODOPA [Suspect]
     Active Substance: CARBIDOPA\LEVODOPA
     Indication: PRODUCT USED FOR UNKNOWN INDICATION
  26. VITAMIN B COMPLEX [Concomitant]
     Active Substance: CYANOCOBALAMIN\DEXPANTHENOL\NIACINAMIDE\PYRIDOXINE HYDROCHLORIDE\RIBOFLAVIN 5^-PHOSPHATE SODIUM\THIAMINE HYDROCHLORIDE\VITAMIN B COMPLEX

REACTIONS (8)
  - Fungal cystitis [Unknown]
  - Renal impairment [Unknown]
  - Confusional state [Unknown]
  - Asthenia [Unknown]
  - Urinary tract infection [Unknown]
  - Accidental overdose [Unknown]
  - Memory impairment [Unknown]
  - Somnolence [Unknown]

NARRATIVE: CASE EVENT DATE: 20191028
